FAERS Safety Report 25848491 (Version 2)
Quarter: 2025Q4

REPORT INFORMATION
  Report Type: Report from Study
  Country: EU (occurrence: EU)
  Receive Date: 20250925
  Receipt Date: 20251015
  Transmission Date: 20260119
  Serious: Yes (Hospitalization, Other)
  Sender: MYLAN
  Company Number: EU-GSK-FR2025GSK115204

PATIENT
  Age: 70 Year
  Sex: Female

DRUGS (12)
  1. PACLITAXEL [Suspect]
     Active Substance: PACLITAXEL
     Indication: Endometrial cancer
     Dosage: 175 MILLIGRAM/SQ. METER
  2. PACLITAXEL [Suspect]
     Active Substance: PACLITAXEL
     Dosage: 175 MILLIGRAM/SQ. METER
     Route: 042
  3. PACLITAXEL [Suspect]
     Active Substance: PACLITAXEL
     Dosage: 175 MILLIGRAM/SQ. METER
     Route: 042
  4. PACLITAXEL [Suspect]
     Active Substance: PACLITAXEL
     Dosage: 175 MILLIGRAM/SQ. METER
  5. DOSTARLIMAB [Suspect]
     Active Substance: DOSTARLIMAB
     Indication: Endometrial cancer
     Dosage: 500 MILLIGRAM, Q3W
     Dates: start: 20250314
  6. DOSTARLIMAB [Suspect]
     Active Substance: DOSTARLIMAB
     Dosage: 500 MILLIGRAM, Q3W
     Route: 042
     Dates: start: 20250314
  7. DOSTARLIMAB [Suspect]
     Active Substance: DOSTARLIMAB
     Dosage: 500 MILLIGRAM, Q3W
     Route: 042
     Dates: start: 20250314
  8. DOSTARLIMAB [Suspect]
     Active Substance: DOSTARLIMAB
     Dosage: 500 MILLIGRAM, Q3W
     Dates: start: 20250314
  9. CARBOPLATIN [Suspect]
     Active Substance: CARBOPLATIN
     Indication: Endometrial cancer
     Dosage: 5 MG/ML/MIN
  10. CARBOPLATIN [Suspect]
     Active Substance: CARBOPLATIN
     Dosage: 5 MG/ML/MIN
     Route: 042
  11. CARBOPLATIN [Suspect]
     Active Substance: CARBOPLATIN
     Dosage: 5 MG/ML/MIN
     Route: 042
  12. CARBOPLATIN [Suspect]
     Active Substance: CARBOPLATIN
     Dosage: 5 MG/ML/MIN

REACTIONS (5)
  - Hypokalaemia [Unknown]
  - Diarrhoea [Unknown]
  - Dehydration [Unknown]
  - Anaemia [Not Recovered/Not Resolved]
  - Incorrect dose administered [Unknown]

NARRATIVE: CASE EVENT DATE: 20250816
